FAERS Safety Report 7313702-4 (Version None)
Quarter: 2011Q1

REPORT INFORMATION
  Report Type: 
  Country: None (occurrence: None)
  Receive Date: 20110225
  Receipt Date: 20110214
  Transmission Date: 20110831
  Serious: Yes (Hospitalization)
  Sender: FDA-Public Use
  Company Number: US-ELI_LILLY_AND_COMPANY-US201102004446

PATIENT
  Sex: Male

DRUGS (4)
  1. ZOLOFT [Concomitant]
  2. DEPAKOTE [Concomitant]
  3. ZYPREXA RELPREVV [Suspect]
     Dosage: 210 MG, UNKNOWN
     Route: 030
     Dates: start: 20101101, end: 20110201
  4. CLOZARIL [Concomitant]
     Indication: SCHIZOPHRENIA
     Dosage: 400 D/F, DAILY (1/D)

REACTIONS (4)
  - SEDATION [None]
  - FALL [None]
  - INJURY [None]
  - SOMNAMBULISM [None]
